FAERS Safety Report 5634853-6 (Version None)
Quarter: 2008Q1

REPORT INFORMATION
  Report Type: 
  Country: None (occurrence: None)
  Receive Date: 20080221
  Receipt Date: 20080221
  Transmission Date: 20080703
  Serious: Yes (Hospitalization)
  Sender: FDA-Public Use
  Company Number: None

PATIENT
  Age: 65 Year
  Sex: Male

DRUGS (1)
  1. POTASSIUM CHLORIDE [Suspect]
     Indication: HYPOKALAEMIA
     Dosage: 40MEQ EVERY DAY PO
     Route: 048
     Dates: start: 20071028, end: 20071107

REACTIONS (5)
  - DIARRHOEA [None]
  - DYSPNOEA [None]
  - HYPERKALAEMIA [None]
  - NAUSEA [None]
  - VOMITING [None]
